FAERS Safety Report 5794768-X (Version None)
Quarter: 2008Q2

REPORT INFORMATION
  Report Type: 
  Country: None (occurrence: None)
  Receive Date: 20080630
  Receipt Date: 20080620
  Transmission Date: 20081010
  Serious: Yes (Other)
  Sender: FDA-Public Use
  Company Number: US-AMGEN-US289300

PATIENT
  Sex: Female
  Weight: 59.9 kg

DRUGS (3)
  1. ENBREL [Suspect]
     Indication: RHEUMATOID ARTHRITIS
     Route: 058
     Dates: start: 20071029
  2. VITAMIN TAB [Concomitant]
     Route: 048
     Dates: start: 20071214
  3. LORTAB [Concomitant]
     Route: 048
     Dates: start: 20071029

REACTIONS (1)
  - ABORTION INDUCED [None]
